FAERS Safety Report 20955652 (Version 1)
Quarter: 2022Q2

REPORT INFORMATION
  Report Type: Spontaneous
  Country: GB (occurrence: GB)
  Receive Date: 20220614
  Receipt Date: 20220614
  Transmission Date: 20220721
  Serious: Yes (Hospitalization)
  Sender: FDA-Public Use
  Company Number: GB-AMNEAL PHARMACEUTICALS-2022-AMRX-01722

PATIENT
  Age: 37 Year
  Sex: Male

DRUGS (1)
  1. BACLOFEN [Suspect]
     Active Substance: BACLOFEN
     Indication: Complex regional pain syndrome
     Dosage: UNK
     Route: 037

REACTIONS (2)
  - Toxicity to various agents [Recovering/Resolving]
  - Overdose [Unknown]
